FAERS Safety Report 9884162 (Version 1)
Quarter: 2014Q1

REPORT INFORMATION
  Report Type: Spontaneous
  Country: US (occurrence: None)
  Receive Date: 20140207
  Receipt Date: 20140207
  Transmission Date: 20141002
  Serious: Yes (Hospitalization, Disabling)
  Sender: FDA-Public Use
  Company Number: None

PATIENT
  Age: 23 Year
  Sex: Female
  Weight: 81.65 kg

DRUGS (1)
  1. ZOLOFT [Suspect]
     Indication: DEPRESSION
     Route: 048

REACTIONS (10)
  - Mania [None]
  - Mood swings [None]
  - Depression [None]
  - Suicidal behaviour [None]
  - Bipolar disorder [None]
  - Convulsion [None]
  - Postictal paralysis [None]
  - Anxiety [None]
  - Headache [None]
  - Drug dependence [None]
